FAERS Safety Report 24061550 (Version 1)
Quarter: 2024Q3

REPORT INFORMATION
  Report Type: Spontaneous
  Country: FR (occurrence: None)
  Receive Date: 20240708
  Receipt Date: 20240708
  Transmission Date: 20241017
  Serious: Yes (Hospitalization, Other)
  Sender: ASTRAZENECA
  Company Number: 2024A154870

PATIENT
  Age: 3 Week
  Sex: Male
  Weight: 4.3 kg

DRUGS (1)
  1. BEYFORTUS [Suspect]
     Active Substance: NIRSEVIMAB-ALIP
     Indication: Immunisation
     Dosage: 1 DF, TOTAL1.0DF ONCE/SINGLE ADMINISTRATION
     Route: 030
     Dates: start: 20231107, end: 20231107

REACTIONS (4)
  - Respiratory syncytial virus test positive [Recovered/Resolved]
  - Bronchiolitis [Recovered/Resolved]
  - Drug ineffective [Unknown]
  - Oxygen therapy [Recovered/Resolved]

NARRATIVE: CASE EVENT DATE: 20231127
